FAERS Safety Report 15936382 (Version 1)
Quarter: 2019Q1

REPORT INFORMATION
  Report Type: Spontaneous
  Country: US (occurrence: US)
  Receive Date: 20190117
  Receipt Date: 20190117
  Transmission Date: 20190417
  Serious: Yes (Hospitalization, Other)
  Sender: FDA-Public Use
  Company Number: None

PATIENT
  Age: 65 Year
  Sex: Female
  Weight: 75.3 kg

DRUGS (5)
  1. ZETIA [Concomitant]
     Active Substance: EZETIMIBE
  2. DYAZIDE [Concomitant]
     Active Substance: HYDROCHLOROTHIAZIDE\TRIAMTERENE
  3. PRAVASTATIN. [Concomitant]
     Active Substance: PRAVASTATIN
  4. TRIAMCINOLONE ACETONIDE INJ SUSPENSION [Suspect]
     Active Substance: TRIAMCINOLONE ACETONIDE
     Indication: PRODUCT USED FOR UNKNOWN INDICATION
     Dates: start: 20181210
  5. SYNTHROID [Concomitant]
     Active Substance: LEVOTHYROXINE SODIUM

REACTIONS (8)
  - Blood glucose increased [None]
  - Duodenal ulcer [None]
  - Fluid imbalance [None]
  - Arthralgia [None]
  - Full blood count abnormal [None]
  - Electrolyte imbalance [None]
  - Restlessness [None]
  - Gastritis [None]

NARRATIVE: CASE EVENT DATE: 20181218
